FAERS Safety Report 6211919-3 (Version None)
Quarter: 2009Q2

REPORT INFORMATION
  Report Type: 
  Country: None (occurrence: None)
  Receive Date: 20090529
  Receipt Date: 20090514
  Transmission Date: 20091009
  Serious: Yes (Death)
  Sender: FDA-Public Use
  Company Number: 2009S1008825

PATIENT
  Age: 60 Year
  Sex: Female

DRUGS (11)
  1. FENTANYL TRANSDERMAL SYSTEM [Suspect]
     Indication: BACK PAIN
     Dosage: 75 UG;EVERY HOUR;TRANSDERMAL
     Route: 062
     Dates: start: 20080501, end: 20090124
  2. FENTANYL TRANSDERMAL SYSTEM [Suspect]
  3. VOLTAREN [Suspect]
     Dosage: TOPICAL; AS NEEDED;
     Route: 061
     Dates: end: 20090124
  4. DILAUDID [Concomitant]
  5. PAROXETINE HCL [Concomitant]
  6. PREDNISONE [Concomitant]
  7. VERPAMIL [Concomitant]
  8. GABAPENTIN [Concomitant]
  9. TIZANIDINE HCL [Concomitant]
  10. LORAZEPAM [Concomitant]
  11. PANTOPRAZOL [Concomitant]

REACTIONS (11)
  - BACK PAIN [None]
  - DRUG EFFECT INCREASED [None]
  - DRUG LEVEL INCREASED [None]
  - HYPERHIDROSIS [None]
  - HYPOPHAGIA [None]
  - INAPPROPRIATE SCHEDULE OF DRUG ADMINISTRATION [None]
  - INCOHERENT [None]
  - NIGHTMARE [None]
  - SOMNOLENCE [None]
  - SPEECH DISORDER [None]
  - THINKING ABNORMAL [None]
